FAERS Safety Report 8513399-1 (Version None)
Quarter: 2012Q3

REPORT INFORMATION
  Report Type: 
  Country: None (occurrence: None)
  Receive Date: 20120717
  Receipt Date: 20120704
  Transmission Date: 20120928
  Serious: No
  Sender: FDA-Public Use
  Company Number: DE-BIOGENIDEC-2011BI016192

PATIENT
  Age: 23 Year
  Sex: Female

DRUGS (2)
  1. KORODIN [Concomitant]
  2. TYSABRI [Suspect]
     Indication: MULTIPLE SCLEROSIS
     Route: 042
     Dates: start: 20070604, end: 20101115

REACTIONS (1)
  - PREGNANCY [None]
